FAERS Safety Report 9633577 (Version 3)
Quarter: 2013Q4

REPORT INFORMATION
  Report Type: Spontaneous
  Country: BR (occurrence: BR)
  Receive Date: 20131021
  Receipt Date: 20131125
  Transmission Date: 20140711
  Serious: Yes (Other)
  Sender: FDA-Public Use
  Company Number: PHHY2013BR117818

PATIENT
  Age: 78 Year
  Sex: Female

DRUGS (3)
  1. FORASEQ [Suspect]
     Indication: ASTHMA
     Dosage: 1 DF, DAILY (1 CAPSULE OF EACH TREATMENT, DAILY)
     Dates: start: 2012
  2. FORASEQ [Suspect]
     Dosage: 1 DF, DAILY (1 CAPSULE OF EACH TREATMENT, DAILY)
  3. FORASEQ [Suspect]
     Dosage: 1 DF, DAILY (1 CAPSULE OF EACH TREATMENT, DAILY)

REACTIONS (4)
  - Dementia Alzheimer^s type [Unknown]
  - Wrong technique in drug usage process [Unknown]
  - Device malfunction [Unknown]
  - Wheezing [Unknown]
